FAERS Safety Report 12882313 (Version 1)
Quarter: 2016Q4

REPORT INFORMATION
  Report Type: Spontaneous
  Country: RU (occurrence: RU)
  Receive Date: 20161025
  Receipt Date: 20161025
  Transmission Date: 20170207
  Serious: Yes (Life-Threatening)
  Sender: FDA-Public Use
  Company Number: RU-FRESENIUS KABI-FK201608102

PATIENT
  Age: 65 Year
  Sex: Female

DRUGS (3)
  1. MEDOKEMI [Concomitant]
  2. GELOFUSIN [Concomitant]
     Active Substance: GELATIN\POTASSIUM CHLORIDE\SODIUM CHLORIDE
  3. PROPOFOL 1% MCT FRESENIUS [Suspect]
     Active Substance: PROPOFOL
     Indication: PRODUCT USED FOR UNKNOWN INDICATION
     Route: 042

REACTIONS (2)
  - Tongue oedema [Recovered/Resolved with Sequelae]
  - Hyperaemia [Recovered/Resolved with Sequelae]

NARRATIVE: CASE EVENT DATE: 20161010
